FAERS Safety Report 7901069-X (Version None)
Quarter: 2011Q4

REPORT INFORMATION
  Report Type: 
  Country: None (occurrence: None)
  Receive Date: 20111108
  Receipt Date: 20111103
  Transmission Date: 20120403
  Serious: Yes (Other)
  Sender: FDA-Public Use
  Company Number: US-ELI_LILLY_AND_COMPANY-US201111001377

PATIENT
  Age: 69 Year
  Sex: Female

DRUGS (2)
  1. EFFIENT [Suspect]
     Indication: STENT PLACEMENT
     Dosage: 60 MG, LOADING DOSE
     Dates: start: 20111102, end: 20111103
  2. EFFIENT [Suspect]
     Dosage: 10 MG, QD
     Dates: end: 20111103

REACTIONS (2)
  - HYPOAESTHESIA [None]
  - CEREBROVASCULAR ACCIDENT [None]
